FAERS Safety Report 8658743 (Version 4)
Quarter: 2012Q4

REPORT INFORMATION
  Report Type: 
  Country: US (occurrence: US)
  Receive Date: 20120710
  Receipt Date: 20121127
  Transmission Date: 20130627
  Serious: Yes (Death, Hospitalization)
  Sender: FDA-Public Use
  Company Number: US-ACTELION-A-NJ2011-49432

PATIENT
  Age: 73 Year
  Sex: Female

DRUGS (3)
  1. TRACLEER [Suspect]
     Indication: PULMONARY ARTERIAL HYPERTENSION
     Dosage: UNK
     Route: 048
  2. ADCIRCA [Concomitant]
  3. POTASSIUM [Concomitant]

REACTIONS (8)
  - Death [Fatal]
  - Lung disorder [Unknown]
  - Blood potassium abnormal [Unknown]
  - Oedema peripheral [Not Recovered/Not Resolved]
  - Weight increased [Not Recovered/Not Resolved]
  - Dyspnoea [Recovering/Resolving]
  - Asthenia [Unknown]
  - Ascites [Not Recovered/Not Resolved]
